FAERS Safety Report 16552234 (Version 1)
Quarter: 2019Q3

REPORT INFORMATION
  Report Type: Spontaneous
  Country: US (occurrence: US)
  Receive Date: 20190710
  Receipt Date: 20190710
  Transmission Date: 20191004
  Serious: No
  Sender: FDA-Public Use
  Company Number: US-TEVA-2019-US-1067886

PATIENT
  Age: 62 Year
  Sex: Male

DRUGS (1)
  1. PROAIR HFA [Suspect]
     Active Substance: ALBUTEROL SULFATE
     Route: 065

REACTIONS (5)
  - Product dispensing issue [Unknown]
  - Therapeutic product effect decreased [Unknown]
  - Inability to afford medication [Unknown]
  - Wheezing [Unknown]
  - Product quality issue [Unknown]
